FAERS Safety Report 5061690-6 (Version None)
Quarter: 2006Q3

REPORT INFORMATION
  Report Type: 
  Country: None (occurrence: None)
  Receive Date: 20060726
  Receipt Date: 20060718
  Transmission Date: 20061208
  Serious: Yes (Hospitalization)
  Sender: FDA-Public Use
  Company Number: PHRM2006FR02128

PATIENT
  Age: 22 Year
  Sex: Male

DRUGS (2)
  1. TEGRETOL [Suspect]
     Indication: PARTIAL SEIZURES
     Dosage: 1 G/DAY
     Route: 048
     Dates: end: 20060527
  2. DI-ANTALVIC [Suspect]
     Indication: PAIN
     Dosage: 2 DF, TID
     Route: 048
     Dates: start: 20060526, end: 20060527

REACTIONS (10)
  - ANTICONVULSANT DRUG LEVEL INCREASED [None]
  - CHEST PAIN [None]
  - CONVULSION [None]
  - DEPRESSED LEVEL OF CONSCIOUSNESS [None]
  - DRUG INTERACTION [None]
  - FALL [None]
  - GLASGOW COMA SCALE ABNORMAL [None]
  - HEADACHE [None]
  - TOOTHACHE [None]
  - VOMITING [None]
